FAERS Safety Report 15562780 (Version 1)
Quarter: 2018Q4

REPORT INFORMATION
  Report Type: Other
  Country: US (occurrence: US)
  Receive Date: 20181029
  Receipt Date: 20181029
  Transmission Date: 20190205
  Serious: No
  Sender: FDA-Public Use
  Company Number: US-AMNEAL PHARMACEUTICALS-2018AMN00630

PATIENT
  Age: 60 Year
  Sex: Female

DRUGS (1)
  1. MOMETASONE FUROATE. [Suspect]
     Active Substance: MOMETASONE FUROATE
     Indication: SINUSITIS
     Dosage: 2 NOT AVAILABLE, 1X/DAY
     Route: 045

REACTIONS (2)
  - Sinus pain [Recovered/Resolved]
  - Headache [Recovered/Resolved]
